FAERS Safety Report 5139568-9 (Version None)
Quarter: 2006Q4

REPORT INFORMATION
  Report Type: 
  Country: None (occurrence: None)
  Receive Date: 20061024
  Receipt Date: 20061017
  Transmission Date: 20070319
  Serious: Yes (Death, Other)
  Sender: FDA-Public Use
  Company Number: 2006SP003352

PATIENT
  Age: 57 Year
  Sex: Male

DRUGS (2)
  1. NOXAFIL [Suspect]
     Indication: FUNGAL INFECTION
     Dosage: 400 MG; BID; PO;  4 GM; ONCE; PO
     Route: 048
     Dates: start: 20060920, end: 20060926
  2. NOXAFIL [Suspect]
     Indication: FUNGAL INFECTION
     Dosage: 400 MG; BID; PO;  4 GM; ONCE; PO
     Route: 048
     Dates: start: 20060926, end: 20060926

REACTIONS (8)
  - BRADYCARDIA [None]
  - FLUSHING [None]
  - IDIOPATHIC PNEUMONIA SYNDROME [None]
  - INCORRECT DOSE ADMINISTERED [None]
  - INTERSTITIAL LUNG DISEASE [None]
  - OVERDOSE [None]
  - SOMNOLENCE [None]
  - SUPRAVENTRICULAR EXTRASYSTOLES [None]
